FAERS Safety Report 4743569-X (Version None)
Quarter: 2005Q3

REPORT INFORMATION
  Report Type: 
  Country: None (occurrence: None)
  Receive Date: 20050809
  Receipt Date: 20050727
  Transmission Date: 20060218
  Serious: Yes (Other)
  Sender: FDA-Public Use
  Company Number: 216436

PATIENT
  Age: 77 Year
  Sex: Male
  Weight: 67 kg

DRUGS (11)
  1. RITUXAN [Suspect]
     Indication: NON-HODGKIN'S LYMPHOMA
     Dosage: 670 MG, INTRAVENOUS
     Route: 042
     Dates: start: 20041216
  2. VINDESINE SULFATE (VINDESINE SULFATE) [Suspect]
     Indication: NON-HODGKIN'S LYMPHOMA
     Dosage: 2.67 MG, DAY 1, INTRAVENOUS
     Route: 042
     Dates: start: 20041217
  3. PIRARUBICIN (PIRARUBICIN) [Suspect]
     Indication: NON-HODGKIN'S LYMPHOMA
     Dosage: 53.4 MG, DAY 1, INTRAVENOUS
     Route: 042
     Dates: start: 20041217
  4. CYCLOPHOSPHAMIDE [Suspect]
     Indication: NON-HODGKIN'S LYMPHOMA
     Dosage: 890 MG, DAY 1, INTRAVENOUS
     Route: 042
     Dates: start: 20041217
  5. PREDNISONE [Suspect]
     Indication: NON-HODGKIN'S LYMPHOMA
     Dosage: 50 MG, DAYS 1-5,ORAL
     Route: 048
     Dates: start: 20041217
  6. POLARAMINE [Concomitant]
  7. FLURBIPROFEN AXETIL (FLURBIPROFEN) [Concomitant]
  8. FAMOTIDINE [Concomitant]
  9. NEUQUINON (UBIDECARENONE) [Concomitant]
  10. METHYCOBAL (MECOBALAMIN) [Concomitant]
  11. KYTRIL [Concomitant]

REACTIONS (3)
  - BLOOD CHLORIDE INCREASED [None]
  - NEUTROPHIL COUNT DECREASED [None]
  - WHITE BLOOD CELL COUNT DECREASED [None]
